FAERS Safety Report 15897189 (Version 1)
Quarter: 2019Q1

REPORT INFORMATION
  Report Type: Spontaneous
  Country: US (occurrence: US)
  Receive Date: 20190131
  Receipt Date: 20190131
  Transmission Date: 20190417
  Serious: No
  Sender: FDA-Public Use
  Company Number: US-GLAXOSMITHKLINE-US2019GSK013378

PATIENT
  Sex: Male

DRUGS (1)
  1. BUPROPION TABLET [Suspect]
     Active Substance: BUPROPION
     Indication: SMOKING CESSATION THERAPY
     Dosage: 1 DF, QD
     Route: 048
     Dates: start: 201708, end: 201708

REACTIONS (4)
  - Product use in unapproved indication [Unknown]
  - Vision blurred [Unknown]
  - Drug ineffective for unapproved indication [Unknown]
  - Abdominal pain upper [Unknown]
